FAERS Safety Report 6055573-2 (Version None)
Quarter: 2009Q1

REPORT INFORMATION
  Report Type: 
  Country: None (occurrence: None)
  Receive Date: 20090128
  Receipt Date: 20090116
  Transmission Date: 20090719
  Serious: Yes (Life-Threatening, Hospitalization)
  Sender: FDA-Public Use
  Company Number: FR-JNJFOC-20090103813

PATIENT
  Age: 36 Year
  Sex: Female

DRUGS (3)
  1. REMICADE [Suspect]
     Route: 042
  2. REMICADE [Suspect]
     Indication: CROHN'S DISEASE
     Route: 042
  3. IMUREL [Suspect]
     Indication: CROHN'S DISEASE
     Route: 048

REACTIONS (3)
  - ANASTOMOTIC COMPLICATION [None]
  - B-CELL LYMPHOMA [None]
  - PERITONITIS [None]
